FAERS Safety Report 11885864 (Version 2)
Quarter: 2017Q1

REPORT INFORMATION
  Report Type: Spontaneous
  Country: FR (occurrence: FR)
  Receive Date: 20160104
  Receipt Date: 20170210
  Transmission Date: 20170428
  Serious: Yes (Hospitalization, Other)
  Sender: FDA-Public Use
  Company Number: FR-JNJFOC-20151223730

PATIENT
  Age: 38 Year
  Sex: Male

DRUGS (4)
  1. TENOFOVIR [Concomitant]
     Active Substance: TENOFOVIR
     Route: 065
  2. EVIPLERA [Concomitant]
     Active Substance: EMTRICITABINE\RILPIVIRINE\TENOFOVIR DISOPROXIL FUMARATE
     Route: 065
     Dates: start: 2013, end: 2015
  3. EDURANT [Suspect]
     Active Substance: RILPIVIRINE HYDROCHLORIDE
     Indication: HIV TEST POSITIVE
     Route: 048
     Dates: start: 20130412, end: 20151217
  4. TIVICAY [Suspect]
     Active Substance: DOLUTEGRAVIR SODIUM
     Indication: HIV TEST POSITIVE
     Route: 048
     Dates: start: 20150421, end: 20151217

REACTIONS (2)
  - Diabetes insipidus [Recovered/Resolved]
  - Nephrogenic diabetes insipidus [Not Recovered/Not Resolved]

NARRATIVE: CASE EVENT DATE: 201511
